FAERS Safety Report 10461446 (Version 1)
Quarter: 2014Q3

REPORT INFORMATION
  Report Type: Spontaneous
  Country: US (occurrence: US)
  Receive Date: 20140918
  Receipt Date: 20140918
  Transmission Date: 20150326
  Serious: No
  Sender: FDA-Public Use
  Company Number: US-PFIZER INC-2014258624

PATIENT
  Age: 10 Year
  Sex: Male

DRUGS (1)
  1. QUILLIVANT XR [Suspect]
     Active Substance: METHYLPHENIDATE HYDROCHLORIDE
     Dosage: UNK

REACTIONS (6)
  - Activities of daily living impaired [Unknown]
  - Drug intolerance [Unknown]
  - Circumstance or information capable of leading to medication error [Unknown]
  - Retching [Unknown]
  - Product quality issue [Unknown]
  - Crying [Unknown]
